FAERS Safety Report 10802385 (Version 3)
Quarter: 2015Q1

REPORT INFORMATION
  Report Type: Spontaneous
  Country: FR (occurrence: FR)
  Receive Date: 20150217
  Receipt Date: 20150227
  Transmission Date: 20150721
  Serious: Yes (Hospitalization)
  Sender: FDA-Public Use
  Company Number: FR-PFIZER INC-2015061909

PATIENT
  Age: 63 Year
  Sex: Male

DRUGS (9)
  1. TARDYFERON [Suspect]
     Active Substance: FERROUS SULFATE\FOLIC ACID
     Dosage: UNK
  2. LEVOTHYROX [Suspect]
     Active Substance: LEVOTHYROXINE
     Dosage: UNK
  3. COUMADINE [Suspect]
     Active Substance: WARFARIN SODIUM
     Dosage: UNK
  4. LASILIX [Suspect]
     Active Substance: FUROSEMIDE
     Dosage: UNK
  5. ATENOLOL. [Suspect]
     Active Substance: ATENOLOL
     Dosage: UNK
  6. TAHOR [Suspect]
     Active Substance: ATORVASTATIN CALCIUM
     Dosage: UNK
     Route: 048
  7. LOXEN [Suspect]
     Active Substance: NICARDIPINE HYDROCHLORIDE
     Dosage: UNK
  8. KARDEGIC [Suspect]
     Active Substance: ASPIRIN LYSINE
     Dosage: UNK
     Route: 048
  9. EUPRESSYL [Suspect]
     Active Substance: URAPIDIL
     Dosage: UNK

REACTIONS (4)
  - Fall [Unknown]
  - Rhabdomyolysis [Unknown]
  - Subdural haemorrhage [Unknown]
  - Hemiplegia [Unknown]

NARRATIVE: CASE EVENT DATE: 201406
